FAERS Safety Report 6411445-2 (Version None)
Quarter: 2009Q4

REPORT INFORMATION
  Report Type: 
  Country: None (occurrence: None)
  Receive Date: 20091023
  Receipt Date: 20091015
  Transmission Date: 20100525
  Serious: Yes (Other)
  Sender: FDA-Public Use
  Company Number: US-ELI_LILLY_AND_COMPANY-US200910003656

PATIENT
  Sex: Female

DRUGS (3)
  1. HUMULIN 70/30 [Suspect]
     Dosage: 15 U, 2/D
  2. HUMULIN 70/30 [Suspect]
  3. HUMALOG [Suspect]

REACTIONS (9)
  - ABDOMINAL DISCOMFORT [None]
  - ANGER [None]
  - BLOOD GLUCOSE INCREASED [None]
  - DRUG INEFFECTIVE [None]
  - LOCALISED INFECTION [None]
  - MALAISE [None]
  - NAUSEA [None]
  - TONGUE OEDEMA [None]
  - VISION BLURRED [None]
